FAERS Safety Report 5121899-X (Version None)
Quarter: 2006Q4

REPORT INFORMATION
  Report Type: 
  Country: None (occurrence: None)
  Receive Date: 20061003
  Receipt Date: 20060921
  Transmission Date: 20070319
  Serious: Yes (Other)
  Sender: FDA-Public Use
  Company Number: L06-GER-03785-01

PATIENT
  Age: 24 Year
  Sex: Female

DRUGS (2)
  1. CARBAMAZEPINE [Suspect]
     Indication: EPILEPSY
     Dosage: 600 MG QD
     Dates: start: 19990101
  2. IMPLANON [Suspect]
     Indication: CONTRACEPTION
     Dates: start: 20030501

REACTIONS (5)
  - ABORTION INDUCED [None]
  - DRUG EXPOSURE DURING PREGNANCY [None]
  - DRUG INTERACTION [None]
  - FOETAL HEART RATE ABNORMAL [None]
  - PREGNANCY WITH IMPLANT CONTRACEPTIVE [None]
